FAERS Safety Report 20254762 (Version 11)
Quarter: 2023Q1

REPORT INFORMATION
  Report Type: Report from Study
  Country: CN (occurrence: None)
  Receive Date: 20211230
  Receipt Date: 20230214
  Transmission Date: 20230417
  Serious: Yes (Hospitalization)
  Sender: FDA-Public Use
  Company Number: CN-ROCHE-2986827

PATIENT
  Age: 50 Year
  Sex: Female
  Weight: 67 kg

DRUGS (30)
  1. BEVACIZUMAB [Suspect]
     Active Substance: BEVACIZUMAB
     Indication: Non-small cell lung cancer stage IV
     Dosage: 0N 17/DEC/2021, MOST RECENT DOSE 1005 MG OF STUDY DRUG PRIOR TO SAE
     Route: 042
     Dates: start: 20211217
  2. ATEZOLIZUMAB [Suspect]
     Active Substance: ATEZOLIZUMAB
     Indication: Non-small cell lung cancer stage IV
     Dosage: 0N 17/DEC/2021MOST RECENT DOSE OF STUDY DRUG PRIOR TO SAE
     Route: 041
     Dates: start: 20211217
  3. CARBOPLATIN [Suspect]
     Active Substance: CARBOPLATIN
     Indication: Non-small cell lung cancer stage IV
     Dosage: ON 17/DEC/2021 MOST RECENT DOSE 642 MG OF STUDY DRUG PRIOR TO AE AND SAE
     Route: 042
     Dates: start: 20211217
  4. PEMETREXED [Suspect]
     Active Substance: PEMETREXED
     Indication: Non-small cell lung cancer stage IV
     Dosage: ON 17/DEC/2021 MOST RECENT DOSE 835 MG OF STUDY DRUG PRIOR TO SAE
     Route: 042
     Dates: start: 20211217
  5. GEFITINIB [Concomitant]
     Active Substance: GEFITINIB
     Dates: start: 20210403, end: 20211201
  6. FOLIC ACID [Concomitant]
     Active Substance: FOLIC ACID
     Dates: start: 20211210
  7. MAGNESIUM ISOGLYCYRRHIZINATE [Concomitant]
     Active Substance: MAGNESIUM ISOGLYCYRRHIZINATE
     Dates: start: 20211220, end: 20211224
  8. MAGNESIUM ISOGLYCYRRHIZINATE [Concomitant]
     Active Substance: MAGNESIUM ISOGLYCYRRHIZINATE
     Dates: start: 20210107, end: 20210110
  9. DEXAMETHASONE [Concomitant]
     Active Substance: DEXAMETHASONE
     Route: 048
     Dates: start: 20211216, end: 20211218
  10. DEXAMETHASONE [Concomitant]
     Active Substance: DEXAMETHASONE
     Route: 048
     Dates: start: 20210106, end: 20210108
  11. DEXAMETHASONE [Concomitant]
     Active Substance: DEXAMETHASONE
     Route: 048
     Dates: start: 20220128, end: 20220130
  12. DEXAMETHASONE [Concomitant]
     Active Substance: DEXAMETHASONE
     Route: 048
     Dates: start: 20220218, end: 20220220
  13. DEXAMETHASONE [Concomitant]
     Active Substance: DEXAMETHASONE
     Route: 048
     Dates: start: 20220106, end: 20220108
  14. GRANISETRON HYDROCHLORIDE [Concomitant]
     Active Substance: GRANISETRON HYDROCHLORIDE
     Indication: Nausea
     Dates: start: 20211217, end: 20211217
  15. GRANISETRON HYDROCHLORIDE [Concomitant]
     Active Substance: GRANISETRON HYDROCHLORIDE
     Dates: start: 20220107, end: 20220107
  16. GRANISETRON HYDROCHLORIDE [Concomitant]
     Active Substance: GRANISETRON HYDROCHLORIDE
     Dates: start: 20220129, end: 20220129
  17. GRANISETRON HYDROCHLORIDE [Concomitant]
     Active Substance: GRANISETRON HYDROCHLORIDE
     Dates: start: 20220219, end: 20220219
  18. HUMAN GRANULOCYTE STIMULATING FACTOR (UNK INGREDIENTS) [Concomitant]
     Dates: start: 20220126, end: 20220127
  19. HUMAN GRANULOCYTE STIMULATING FACTOR (UNK INGREDIENTS) [Concomitant]
     Dates: start: 20220310, end: 20220311
  20. HUMAN GRANULOCYTE STIMULATING FACTOR (UNK INGREDIENTS) [Concomitant]
     Dates: start: 20220316, end: 20220317
  21. ZOLEDRONIC ACID [Concomitant]
     Active Substance: ZOLEDRONIC ACID
     Dates: start: 20211224, end: 20211224
  22. ACETAMINOPHEN\OXYCODONE HYDROCHLORIDE [Concomitant]
     Active Substance: ACETAMINOPHEN\OXYCODONE HYDROCHLORIDE
     Indication: Analgesic therapy
     Dates: start: 20210311
  23. GEFITINIB [Concomitant]
     Active Substance: GEFITINIB
     Dates: start: 20210403, end: 20211201
  24. VITAMIN B12 [Concomitant]
     Active Substance: CYANOCOBALAMIN
     Indication: Prophylaxis
     Dates: start: 20211217, end: 20211217
  25. VITAMIN B12 [Concomitant]
     Active Substance: CYANOCOBALAMIN
     Dates: start: 20220219, end: 20220219
  26. COMPOUND GLYCYRRHIZIC ACID (UNK INGREDIENTS) [Concomitant]
     Dates: start: 20220218, end: 20220220
  27. COMPOUND GLYCYRRHIZIC ACID (UNK INGREDIENTS) [Concomitant]
     Dates: start: 20220126, end: 20220129
  28. CARBOPLATIN [Concomitant]
     Active Substance: CARBOPLATIN
     Dates: start: 20220410, end: 20220418
  29. CARBOPLATIN [Concomitant]
     Active Substance: CARBOPLATIN
     Dates: start: 20220319, end: 20220501
  30. DOCETAXEL [Concomitant]
     Active Substance: DOCETAXEL
     Dates: start: 20220319, end: 20220501

REACTIONS (1)
  - Aspartate aminotransferase increased [Not Recovered/Not Resolved]

NARRATIVE: CASE EVENT DATE: 20211220
